FAERS Safety Report 7373774-8 (Version None)
Quarter: 2011Q1

REPORT INFORMATION
  Report Type: 
  Country: None (occurrence: None)
  Receive Date: 20110315
  Receipt Date: 20110304
  Transmission Date: 20110831
  Serious: Yes (Other)
  Sender: FDA-Public Use
  Company Number: 2011SP010593

PATIENT
  Age: 62 Year
  Sex: Male

DRUGS (2)
  1. ALPRAZOLAM [Concomitant]
  2. REMERGON SOLTAB (MIRTAZAPINE /01293201/) [Suspect]
     Indication: MAJOR DEPRESSION
     Dosage: 30 MG;HS
     Dates: start: 20101101

REACTIONS (2)
  - OCULAR HYPERTENSION [None]
  - DRY EYE [None]
